FAERS Safety Report 18610230 (Version 1)
Quarter: 2020Q4

REPORT INFORMATION
  Report Type: Report from Study
  Country: GB (occurrence: GB)
  Receive Date: 20201214
  Receipt Date: 20201214
  Transmission Date: 20210114
  Serious: Yes (Death, Other)
  Sender: FDA-Public Use
  Company Number: GB-PFIZER INC-2020488516

PATIENT
  Age: 37 Year
  Sex: Male

DRUGS (3)
  1. PREGABALIN. [Suspect]
     Active Substance: PREGABALIN
     Dosage: UNK
  2. METHADONE [Suspect]
     Active Substance: METHADONE HYDROCHLORIDE
     Dosage: UNK
  3. ETIZOLAM [Suspect]
     Active Substance: ETIZOLAM
     Dosage: UNK
     Route: 048

REACTIONS (2)
  - Toxicity to various agents [Fatal]
  - Drug abuse [Fatal]
